FAERS Safety Report 7580161-6 (Version None)
Quarter: 2011Q2

REPORT INFORMATION
  Report Type: 
  Country: None (occurrence: None)
  Receive Date: 20110629
  Receipt Date: 20110622
  Transmission Date: 20111010
  Serious: Yes (Hospitalization)
  Sender: FDA-Public Use
  Company Number: TW-ROXANE LABORATORIES, INC.-2011-RO-00881RO

PATIENT
  Sex: Male
  Weight: 2 kg

DRUGS (2)
  1. PHENOBARBITAL TAB [Suspect]
     Indication: CONVULSION NEONATAL
  2. CALCIUM GLUCONATE [Suspect]
     Indication: HYPOCALCAEMIA
     Route: 042

REACTIONS (5)
  - COMPARTMENT SYNDROME [None]
  - NECROSIS [None]
  - INFUSION SITE EXTRAVASATION [None]
  - CELLULITIS [None]
  - CALCINOSIS [None]
